FAERS Safety Report 19770204 (Version 1)
Quarter: 2021Q3

REPORT INFORMATION
  Report Type: Spontaneous
  Country: US (occurrence: US)
  Receive Date: 20210901
  Receipt Date: 20210901
  Transmission Date: 20211014
  Serious: No
  Sender: FDA-Public Use
  Company Number: US-DRREDDYS-SPO/USA/21/0139497

PATIENT
  Age: 76 Year
  Sex: Female

DRUGS (2)
  1. GUAIFENESIN AND PSEUDOEPHEDRINE HYDROCHLORIDE EXTENDED?RELEASE TABLETS [Suspect]
     Active Substance: GUAIFENESIN\PSEUDOEPHEDRINE HYDROCHLORIDE
     Dosage: 600MG/60MG
     Dates: start: 20210825
  2. GUAIFENESIN AND PSEUDOEPHEDRINE HYDROCHLORIDE EXTENDED?RELEASE TABLETS [Suspect]
     Active Substance: GUAIFENESIN\PSEUDOEPHEDRINE HYDROCHLORIDE
     Indication: NASAL CONGESTION
     Dosage: 600MG/60MG
     Dates: start: 20210824

REACTIONS (2)
  - Muscle spasms [Unknown]
  - Incorrect dose administered [Unknown]
